FAERS Safety Report 10689589 (Version 2)
Quarter: 2015Q2

REPORT INFORMATION
  Report Type: Spontaneous
  Country: US (occurrence: US)
  Receive Date: 20150105
  Receipt Date: 20150424
  Transmission Date: 20150821
  Serious: No
  Sender: FDA-Public Use
  Company Number: US-PFIZER INC-2014360404

PATIENT
  Age: 58 Year
  Sex: Male

DRUGS (2)
  1. SUTENT [Suspect]
     Active Substance: SUNITINIB MALATE
     Indication: RENAL CANCER
  2. SUTENT [Suspect]
     Active Substance: SUNITINIB MALATE
     Indication: RENAL CANCER
     Dosage: 50 MG, 1X/DAILY
     Route: 048
     Dates: start: 20140729

REACTIONS (4)
  - Skin lesion [Unknown]
  - Toothache [Unknown]
  - Abdominal pain upper [Unknown]
  - Swollen tongue [Unknown]

NARRATIVE: CASE EVENT DATE: 20141226
